FAERS Safety Report 7041568-9 (Version None)
Quarter: 2010Q3

REPORT INFORMATION
  Report Type: 
  Country: None (occurrence: None)
  Receive Date: 20100929
  Receipt Date: 20100819
  Transmission Date: 20110219
  Serious: No
  Sender: FDA-Public Use
  Company Number: US-WYE-H17140710

PATIENT
  Age: 35 Year
  Sex: Female
  Weight: 57.2 kg

DRUGS (5)
  1. PRISTIQ [Suspect]
     Indication: ANXIETY
     Dosage: 50 MG 1X PER 1 DAY
     Dates: start: 20100722
  2. PRISTIQ [Suspect]
     Indication: DEPRESSION
     Dosage: 50 MG 1X PER 1 DAY
     Dates: start: 20100722
  3. EFFEXOR [Suspect]
     Dosage: UNSPECIFIED
     Dates: end: 20100201
  4. LUNESTA [Concomitant]
  5. CLONAZEPAM [Concomitant]

REACTIONS (8)
  - CONDITION AGGRAVATED [None]
  - IMPATIENCE [None]
  - INSOMNIA [None]
  - INTENTIONAL DRUG MISUSE [None]
  - IRRITABILITY [None]
  - NIGHT SWEATS [None]
  - ORGASM ABNORMAL [None]
  - SENSORY DISTURBANCE [None]
